FAERS Safety Report 5856904 (Version 3)
Quarter: 2013Q1

REPORT INFORMATION
  Report Type: Spontaneous
  Country: US (occurrence: US)
  Receive Date: 20050810
  Receipt Date: 20120106
  Transmission Date: 20140127
  Serious: Yes (Death)
  Sender: FDA-Public Use
  Company Number: None

PATIENT
  Age: 5 Year
  Sex: Male
  Weight: 25.6 kg

DRUGS (5)
  1. TOPAMAX [Suspect]
     Route: 048
  2. CARBATROL [Concomitant]
     Dosage: (300 MG DAILY IN MORNING AND 400 MG DAILY AT NIGHT)
     Route: 048
  3. KEPPRA [Concomitant]
     Route: 048
  4. ABILIFY [Concomitant]
     Dosage: (1CC IN MORNING AND 2CC AT NIGHT)
     Route: 048
  5. DIASTAT [Concomitant]

REACTIONS (3)
  - SUDDEN DEATH [Fatal]
  - ASPIRATION [Fatal]
  - EPISTAXIS [Fatal]
